FAERS Safety Report 23523006 (Version 1)
Quarter: 2024Q1

REPORT INFORMATION
  Report Type: Spontaneous
  Country: US (occurrence: None)
  Receive Date: 20240213
  Receipt Date: 20240213
  Transmission Date: 20240410
  Serious: Yes (Death, Life-Threatening, Hospitalization)
  Sender: FDA-Public Use
  Company Number: None

PATIENT
  Age: 30 Year
  Sex: Female
  Weight: 88.6 kg

DRUGS (1)
  1. SACITUZUMAB GOVITECAN [Suspect]
     Active Substance: SACITUZUMAB GOVITECAN
     Indication: Breast cancer metastatic
     Dosage: OTHER FREQUENCY : D1, 8 Q3W;?
     Route: 042
     Dates: start: 20231228, end: 20240123

REACTIONS (4)
  - Hypertransaminasaemia [None]
  - Blood bilirubin increased [None]
  - Hepatic failure [None]
  - Portal hypertension [None]

NARRATIVE: CASE EVENT DATE: 20240208
